FAERS Safety Report 24116691 (Version 1)
Quarter: 2024Q3

REPORT INFORMATION
  Report Type: Spontaneous
  Country: US (occurrence: US)
  Receive Date: 20240722
  Receipt Date: 20240722
  Transmission Date: 20241016
  Serious: No
  Sender: ASTELLAS
  Company Number: US-ASTELLAS-2023US027976

PATIENT
  Age: 77 Year
  Sex: Female

DRUGS (7)
  1. MYRBETRIQ [Interacting]
     Active Substance: MIRABEGRON
     Indication: Hypertonic bladder
     Route: 048
     Dates: start: 20230817, end: 20230907
  2. MYRBETRIQ [Interacting]
     Active Substance: MIRABEGRON
     Indication: Urinary incontinence
  3. MYRBETRIQ [Interacting]
     Active Substance: MIRABEGRON
     Indication: Micturition urgency
  4. FLECAINIDE [Interacting]
     Active Substance: FLECAINIDE
     Indication: Atrial fibrillation
     Route: 065
     Dates: start: 202203
  5. FLECAINIDE [Interacting]
     Active Substance: FLECAINIDE
     Route: 065
  6. OZEMPIC [Suspect]
     Active Substance: SEMAGLUTIDE
     Indication: Type 2 diabetes mellitus
     Dosage: 1 MG, OTHER (WEEKLY)
     Route: 065
     Dates: end: 20230821
  7. OZEMPIC [Suspect]
     Active Substance: SEMAGLUTIDE
     Dosage: 1 MG, OTHER (WEEKLY)
     Route: 065
     Dates: start: 20230911

REACTIONS (6)
  - Weight decreased [Recovering/Resolving]
  - Condition aggravated [Recovering/Resolving]
  - Nausea [Recovered/Resolved]
  - Decreased appetite [Recovered/Resolved]
  - Condition aggravated [Recovered/Resolved]
  - Drug interaction [Unknown]

NARRATIVE: CASE EVENT DATE: 20230817
